FAERS Safety Report 5061108-3 (Version None)
Quarter: 2006Q3

REPORT INFORMATION
  Report Type: 
  Country: None (occurrence: None)
  Receive Date: 20060720
  Receipt Date: 20060712
  Transmission Date: 20061208
  Serious: Yes (Other)
  Sender: FDA-Public Use
  Company Number: S06-USA-01138-01

PATIENT
  Age: 48 Year
  Sex: Male

DRUGS (12)
  1. AEROBID [Suspect]
     Indication: ASTHMA
     Dosage: 2 PUFF BID IH
     Route: 055
     Dates: start: 20040301
  2. AEROBID [Suspect]
     Indication: ASTHMA
     Dates: end: 20050801
  3. AEROBID [Suspect]
     Indication: ASTHMA
     Dosage: 8 PUFF QD IH
     Route: 055
     Dates: start: 20050801
  4. AEROBID [Suspect]
     Indication: ASTHMA
     Dosage: 4 PUFF DAILY IH
     Route: 055
     Dates: end: 20060101
  5. AEROBID [Suspect]
     Indication: ASTHMA
     Dates: start: 20060101
  6. PULMICORT [Concomitant]
  7. ALBUTEROL SPIROS [Concomitant]
  8. ATROVENT [Concomitant]
  9. SINGULAIR [Concomitant]
  10. SUDAFED 12 HOUR [Concomitant]
  11. CLARITIN [Concomitant]
  12. NIACIN [Concomitant]

REACTIONS (21)
  - ASTHMA [None]
  - BLOOD PRESSURE DIASTOLIC INCREASED [None]
  - BLOOD PRESSURE SYSTOLIC DECREASED [None]
  - BURNING SENSATION [None]
  - COGNITIVE DISORDER [None]
  - CONVULSION [None]
  - DIZZINESS [None]
  - FALL [None]
  - FATIGUE [None]
  - HEADACHE [None]
  - HYPOAESTHESIA [None]
  - INFLUENZA LIKE ILLNESS [None]
  - LOSS OF CONSCIOUSNESS [None]
  - LUNG DISORDER [None]
  - MUSCLE SPASMS [None]
  - NAUSEA [None]
  - PARAESTHESIA [None]
  - PYREXIA [None]
  - THINKING ABNORMAL [None]
  - TREMOR [None]
  - VERTIGO [None]
